FAERS Safety Report 8401052-4 (Version None)
Quarter: 2012Q2

REPORT INFORMATION
  Report Type: 
  Country: None (occurrence: None)
  Receive Date: 20120525
  Receipt Date: 20120518
  Transmission Date: 20120825
  Serious: No
  Sender: FDA-Public Use
  Company Number: 2012SP021319

PATIENT
  Age: 25 Year
  Sex: Male

DRUGS (2)
  1. SAPHRIS [Suspect]
     Indication: PSYCHOTIC DISORDER
     Dosage: 10;5 MG, HS, BID, SL
     Route: 060
     Dates: start: 20110929
  2. FLUOXETINE [Concomitant]

REACTIONS (2)
  - SELF-MEDICATION [None]
  - DYSPNOEA [None]
